FAERS Safety Report 12673639 (Version 2)
Quarter: 2016Q3

REPORT INFORMATION
  Report Type: Spontaneous
  Country: US (occurrence: US)
  Receive Date: 20160822
  Receipt Date: 20160823
  Transmission Date: 20161109
  Serious: No
  Sender: FDA-Public Use
  Company Number: US-PFIZER INC-2016393730

PATIENT
  Age: 4 Year
  Sex: Male
  Weight: 19 kg

DRUGS (3)
  1. QUILLIVANT XR [Suspect]
     Active Substance: METHYLPHENIDATE HYDROCHLORIDE
     Dosage: 5 ML, UNK
     Dates: start: 2015, end: 201606
  2. QUILLIVANT XR [Suspect]
     Active Substance: METHYLPHENIDATE HYDROCHLORIDE
     Dosage: 4 ML, UNK
  3. QUILLIVANT XR [Suspect]
     Active Substance: METHYLPHENIDATE HYDROCHLORIDE
     Indication: ATTENTION DEFICIT/HYPERACTIVITY DISORDER
     Dosage: 4 ML, 1X/DAY EVERY MORNING
     Route: 048
     Dates: start: 201410

REACTIONS (18)
  - Drug effect decreased [Unknown]
  - Social avoidant behaviour [Unknown]
  - Crying [Unknown]
  - Insomnia [Recovered/Resolved]
  - Anger [Unknown]
  - Weight gain poor [Unknown]
  - Pyrexia [Recovered/Resolved]
  - Emotional disorder [Unknown]
  - Feeling abnormal [Unknown]
  - Intentional underdose [Unknown]
  - Abdominal pain upper [Unknown]
  - Diet refusal [Unknown]
  - Influenza like illness [Recovered/Resolved]
  - Expired product administered [Unknown]
  - Constipation [Recovered/Resolved]
  - Decreased appetite [Unknown]
  - Refusal of treatment by patient [Not Recovered/Not Resolved]
  - Drug administered to patient of inappropriate age [Unknown]

NARRATIVE: CASE EVENT DATE: 201410
